FAERS Safety Report 21193489 (Version 1)
Quarter: 2022Q3

REPORT INFORMATION
  Report Type: Spontaneous
  Country: US (occurrence: US)
  Receive Date: 20220810
  Receipt Date: 20220810
  Transmission Date: 20221027
  Serious: No
  Sender: FDA-Public Use
  Company Number: US-KYOWAKIRIN-2022BKK012518

PATIENT

DRUGS (2)
  1. POTELIGEO [Suspect]
     Active Substance: MOGAMULIZUMAB-KPKC
     Indication: Cutaneous T-cell lymphoma
     Dosage: UNK UNK, 1X/WEEK (ONCE WEEKLY X 1 MONTH)
     Route: 065
     Dates: start: 20220616
  2. POTELIGEO [Suspect]
     Active Substance: MOGAMULIZUMAB-KPKC
     Dosage: UNK UNK, 1X/2 WEEKS
     Route: 065
     Dates: start: 202207

REACTIONS (5)
  - Fatigue [Unknown]
  - Insomnia [Unknown]
  - Blister [Unknown]
  - Dry skin [Unknown]
  - Full blood count increased [Unknown]
